FAERS Safety Report 6956210-2 (Version None)
Quarter: 2010Q3

REPORT INFORMATION
  Report Type: 
  Country: None (occurrence: None)
  Receive Date: 20100830
  Receipt Date: 20100729
  Transmission Date: 20110219
  Serious: No
  Sender: FDA-Public Use
  Company Number: US-BAYER-201019123BCC

PATIENT
  Age: 59 Year
  Sex: Male
  Weight: 120 kg

DRUGS (7)
  1. ALEVE (CAPLET) [Suspect]
     Indication: ARTHRALGIA
     Dosage: TOTAL DAILY DOSE: 1 DF  UNIT DOSE: 1 DF
     Route: 048
     Dates: start: 20100728
  2. DIOVAN [Concomitant]
  3. HCT [Concomitant]
  4. ASPIRIN [Concomitant]
  5. PERCOCET [Concomitant]
  6. AMLODIPINE [Concomitant]
  7. CHLORTHALIDONE [Concomitant]

REACTIONS (4)
  - EYE SWELLING [None]
  - HYPERSENSITIVITY [None]
  - LIP SWELLING [None]
  - SWELLING FACE [None]
